FAERS Safety Report 8417407-8 (Version None)
Quarter: 2012Q2

REPORT INFORMATION
  Report Type: 
  Country: None (occurrence: None)
  Receive Date: 20120606
  Receipt Date: 20120530
  Transmission Date: 20120825
  Serious: Yes (Hospitalization, Other)
  Sender: FDA-Public Use
  Company Number: DE-ABBOTT-12P-062-0940696-00

PATIENT
  Age: 74 Year
  Sex: Female
  Weight: 75 kg

DRUGS (4)
  1. PREDNISOLONE [Concomitant]
     Dates: start: 20120521
  2. HUMIRA [Suspect]
     Indication: RHEUMATOID ARTHRITIS
     Route: 058
     Dates: start: 20120302, end: 20120520
  3. METHOTREXATE [Suspect]
     Indication: RHEUMATOID ARTHRITIS
     Dosage: ONCE WEEKLY
     Dates: start: 20111001, end: 20120501
  4. PREDNISOLONE [Concomitant]
     Indication: RHEUMATOID ARTHRITIS
     Dates: start: 20111001, end: 20120520

REACTIONS (3)
  - TRACHEOBRONCHITIS [None]
  - BRONCHIOLITIS [None]
  - BRONCHIECTASIS [None]
